FAERS Safety Report 5131388-4 (Version None)
Quarter: 2006Q4

REPORT INFORMATION
  Report Type: 
  Country: None (occurrence: None)
  Receive Date: 20061020
  Receipt Date: 20061013
  Transmission Date: 20070319
  Serious: Yes (Hospitalization, Disabling)
  Sender: FDA-Public Use
  Company Number: US-GLAXOSMITHKLINE-A0623553A

PATIENT
  Sex: Female

DRUGS (7)
  1. PAROXETINE HCL [Suspect]
     Indication: DEPRESSION
     Route: 048
  2. PAXIL CR [Suspect]
     Indication: DEPRESSION
     Dosage: 75MG PER DAY
     Route: 048
  3. PAXIL [Suspect]
     Indication: DEPRESSION
     Dosage: 20MG PER DAY
     Route: 048
  4. SYNTHROID [Concomitant]
  5. EFFEXOR XR [Concomitant]
  6. ALLEGRA [Concomitant]
  7. ACYCLOVIR [Concomitant]

REACTIONS (8)
  - CHEST PAIN [None]
  - DEPENDENCE [None]
  - DEPRESSION [None]
  - DIARRHOEA [None]
  - DRUG INEFFECTIVE [None]
  - HYPERTENSION [None]
  - IRRITABILITY [None]
  - WEIGHT INCREASED [None]
